FAERS Safety Report 4308822-2 (Version None)
Quarter: 2004Q1

REPORT INFORMATION
  Report Type: 
  Country: None (occurrence: None)
  Receive Date: 20040227
  Receipt Date: 20040215
  Transmission Date: 20041129
  Serious: Yes (Hospitalization)
  Sender: FDA-Public Use
  Company Number: SP00128

PATIENT
  Sex: Female
  Weight: 103.4201 kg

DRUGS (3)
  1. COLAZAL [Suspect]
     Indication: COLITIS ULCERATIVE
     Dosage: SEE IMAGE
     Dates: start: 20031219, end: 20031223
  2. PREDNISONE [Concomitant]
  3. CONTRACEPTIVE [Concomitant]

REACTIONS (4)
  - PROTEINURIA [None]
  - PYREXIA [None]
  - SKIN ULCER [None]
  - VASCULITIS [None]
